FAERS Safety Report 9174508 (Version 1)
Quarter: 2013Q1

REPORT INFORMATION
  Report Type: Spontaneous
  Country: US (occurrence: US)
  Receive Date: 20130320
  Receipt Date: 20130320
  Transmission Date: 20140127
  Serious: No
  Sender: FDA-Public Use
  Company Number: US-MYLANLABS-2012S1016821

PATIENT
  Age: 59 Year
  Sex: Female
  Weight: 67.59 kg

DRUGS (1)
  1. ESTRADIOL TRANSDERMAL SYSTEM, USP [Suspect]
     Indication: HORMONE THERAPY
     Dosage: EVERY THIRD DAY
     Route: 062
     Dates: start: 20120606, end: 20120802

REACTIONS (4)
  - Joint swelling [Recovering/Resolving]
  - Local swelling [Recovering/Resolving]
  - Breast swelling [Recovered/Resolved]
  - Breast tenderness [Recovered/Resolved]
